FAERS Safety Report 7672640-8 (Version None)
Quarter: 2011Q3

REPORT INFORMATION
  Report Type: 
  Country: None (occurrence: None)
  Receive Date: 20110809
  Receipt Date: 20110728
  Transmission Date: 20111222
  Serious: Yes (Death, Life-Threatening, Hospitalization)
  Sender: FDA-Public Use
  Company Number: AU-JNJFOC-20110710716

PATIENT
  Sex: Female
  Weight: 62.3 kg

DRUGS (59)
  1. RIVAROXABAN [Suspect]
     Route: 048
     Dates: start: 20090121, end: 20090415
  2. RIVAROXABAN [Suspect]
     Route: 048
     Dates: start: 20081017, end: 20081106
  3. RIVAROXABAN [Suspect]
     Route: 048
     Dates: start: 20081107, end: 20090120
  4. SPIRIVA [Concomitant]
     Indication: CHRONIC OBSTRUCTIVE PULMONARY DISEASE
     Route: 055
     Dates: start: 20000101
  5. AMOXICILLIN [Concomitant]
     Indication: PROPHYLAXIS URINARY TRACT INFECTION
     Route: 048
     Dates: start: 20090520
  6. AMOXICILLIN [Concomitant]
     Route: 048
     Dates: start: 20090520, end: 20090810
  7. URAL [Concomitant]
     Indication: PROPHYLAXIS
     Route: 048
  8. URAL [Concomitant]
     Indication: MICTURITION DISORDER
     Route: 048
  9. RIVAROXABAN [Suspect]
     Route: 048
     Dates: start: 20090121, end: 20090415
  10. RIVAROXABAN [Suspect]
     Route: 048
     Dates: start: 20090121, end: 20090415
  11. RIVAROXABAN [Suspect]
     Route: 048
     Dates: start: 20090416, end: 20090716
  12. SOFT WHITE PARAFFIN [Concomitant]
     Indication: DERMATITIS
     Route: 061
     Dates: start: 20090119, end: 20090810
  13. BETAMETHASONE [Concomitant]
     Indication: DERMATITIS
     Route: 061
     Dates: start: 20080701
  14. LORATADINE [Concomitant]
     Indication: DERMATITIS
     Route: 048
     Dates: start: 20090126, end: 20090810
  15. AMOXICILLIN [Concomitant]
     Route: 048
     Dates: start: 20090408, end: 20090401
  16. ZINC [Concomitant]
     Route: 061
     Dates: start: 20090520, end: 20090810
  17. URAL [Concomitant]
     Route: 048
     Dates: start: 20090520
  18. BETAMETHASONE [Concomitant]
     Route: 061
     Dates: start: 20080712
  19. ELOCON [Concomitant]
     Indication: DERMATITIS
     Route: 061
     Dates: start: 20090119, end: 20090810
  20. AMOXICILLIN [Concomitant]
     Indication: PROPHYLAXIS
     Route: 048
     Dates: start: 20090520
  21. RIVAROXABAN [Suspect]
     Route: 048
     Dates: start: 20081107, end: 20090120
  22. FUROSEMIDE [Concomitant]
     Indication: CHRONIC OBSTRUCTIVE PULMONARY DISEASE
     Route: 048
     Dates: start: 20040101, end: 20090810
  23. AMOXICILLIN [Concomitant]
     Route: 048
     Dates: start: 20090520
  24. RIVAROXABAN [Suspect]
     Indication: PULMONARY EMBOLISM
     Route: 048
     Dates: start: 20090416, end: 20090716
  25. RIVAROXABAN [Suspect]
     Route: 048
     Dates: start: 20081017, end: 20081106
  26. RIVAROXABAN [Suspect]
     Route: 048
     Dates: start: 20081107, end: 20090120
  27. RIVAROXABAN [Suspect]
     Route: 048
     Dates: start: 20090121, end: 20090415
  28. RIVAROXABAN [Suspect]
     Route: 048
     Dates: start: 20081107, end: 20090120
  29. RIVAROXABAN [Suspect]
     Route: 048
     Dates: start: 20090121, end: 20090415
  30. PHENERGAN HCL [Concomitant]
     Indication: DERMATITIS
     Route: 048
     Dates: start: 20090120
  31. BETAMETHASONE [Concomitant]
     Route: 061
     Dates: start: 20080712
  32. AMOXICILLIN [Concomitant]
     Route: 048
     Dates: start: 20090520, end: 20090810
  33. AMOXICILLIN [Concomitant]
     Route: 048
     Dates: start: 20090408, end: 20090401
  34. DESOWEN [Concomitant]
     Indication: DERMATITIS
     Route: 061
     Dates: start: 20090520, end: 20090810
  35. ZINC [Concomitant]
     Indication: DERMATITIS
     Route: 061
     Dates: start: 20090520, end: 20090810
  36. PREDNISONE [Concomitant]
     Indication: DERMATITIS
     Route: 048
     Dates: start: 20090528
  37. BETAMETHASONE [Concomitant]
     Route: 061
     Dates: start: 20080701
  38. ARTIFICIAL TEARS NOS [Concomitant]
     Indication: DERMATITIS
     Route: 061
     Dates: start: 20080701, end: 20090810
  39. AMPICILLIN SODIUM [Concomitant]
     Indication: URINARY TRACT INFECTION
     Route: 048
     Dates: start: 20090101, end: 20090117
  40. AMOXICILLIN [Concomitant]
     Route: 048
     Dates: start: 20090520, end: 20090810
  41. LORATADINE [Concomitant]
     Route: 048
     Dates: start: 20090126, end: 20090810
  42. WARFARIN [Concomitant]
     Indication: THROMBOSIS PROPHYLAXIS
     Route: 048
     Dates: start: 20090717, end: 20090810
  43. RIVAROXABAN [Suspect]
     Route: 048
     Dates: start: 20090416, end: 20090716
  44. RIVAROXABAN [Suspect]
     Route: 048
     Dates: start: 20090416, end: 20090716
  45. RIVAROXABAN [Suspect]
     Route: 048
     Dates: start: 20081017, end: 20081106
  46. RIVAROXABAN [Suspect]
     Route: 048
     Dates: start: 20081017, end: 20081106
  47. PHENERGAN HCL [Concomitant]
     Route: 048
     Dates: start: 20080701, end: 20090501
  48. PHENERGAN HCL [Concomitant]
     Route: 048
     Dates: start: 20090120
  49. CEPHALEXIN [Concomitant]
     Indication: URINARY TRACT INFECTION
     Route: 048
     Dates: start: 20081201, end: 20090101
  50. NORFLOXACIN [Concomitant]
     Indication: URINARY TRACT INFECTION
     Route: 048
     Dates: start: 20090117, end: 20090119
  51. AUGMENTIN '125' [Concomitant]
     Indication: PROPHYLAXIS URINARY TRACT INFECTION
     Route: 048
     Dates: start: 20090430, end: 20090430
  52. URAL [Concomitant]
     Route: 048
     Dates: start: 20090520, end: 20090810
  53. URAL [Concomitant]
     Route: 048
     Dates: start: 20090520, end: 20090810
  54. RIVAROXABAN [Suspect]
     Route: 048
     Dates: start: 20081107, end: 20090120
  55. RIVAROXABAN [Suspect]
     Route: 048
     Dates: start: 20081017, end: 20081106
  56. RIVAROXABAN [Suspect]
     Route: 048
     Dates: start: 20090416, end: 20090716
  57. PHENERGAN HCL [Concomitant]
     Route: 048
     Dates: start: 20080701, end: 20090501
  58. CALAMINE [Concomitant]
     Indication: DERMATITIS
     Route: 061
     Dates: start: 20081112, end: 20090119
  59. AMOXICILLIN [Concomitant]
     Route: 048
     Dates: start: 20090408, end: 20090401

REACTIONS (14)
  - SEPSIS [None]
  - GASTROINTESTINAL HAEMORRHAGE [None]
  - FEELING OF BODY TEMPERATURE CHANGE [None]
  - BLISTER [None]
  - URINARY TRACT INFECTION [None]
  - DYSURIA [None]
  - MALAISE [None]
  - CHILLS [None]
  - DERMATITIS EXFOLIATIVE [None]
  - SECRETION DISCHARGE [None]
  - RASH [None]
  - UROSEPSIS [None]
  - HERPES SIMPLEX [None]
  - PYREXIA [None]
